FAERS Safety Report 25138469 (Version 1)
Quarter: 2025Q1

REPORT INFORMATION
  Report Type: Spontaneous
  Country: US (occurrence: US)
  Receive Date: 20250330
  Receipt Date: 20250330
  Transmission Date: 20250408
  Serious: Yes (Hospitalization, Other)
  Sender: BRISTOL-MYERS SQUIBB COMPANY
  Company Number: US-BRISTOL-MYERS SQUIBB COMPANY-2025-040645

PATIENT
  Age: 86 Year
  Sex: Female

DRUGS (1)
  1. LENALIDOMIDE [Suspect]
     Active Substance: LENALIDOMIDE
     Indication: Plasma cell myeloma
     Dosage: TAKE 1 CAPSULE WHOLE BY MOUTH WITH WATER DAILY FOR 21 DAYS EVERY 28 DAYS. DON^T BREAK, CHEW, OR OPEN
     Dates: start: 20250310

REACTIONS (3)
  - Dizziness [Recovering/Resolving]
  - Diverticulitis [Recovered/Resolved]
  - Limb discomfort [Recovering/Resolving]

NARRATIVE: CASE EVENT DATE: 20250312
